FAERS Safety Report 5145873-2 (Version None)
Quarter: 2006Q4

REPORT INFORMATION
  Report Type: 
  Country: None (occurrence: None)
  Receive Date: 20061101
  Receipt Date: 20061017
  Transmission Date: 20070319
  Serious: Yes (Death, Hospitalization)
  Sender: FDA-Public Use
  Company Number: 2006002016

PATIENT
  Age: 65 Year
  Sex: Female
  Weight: 52.6173 kg

DRUGS (1)
  1. TARCEVA [Suspect]
     Indication: DRUG USE FOR UNKNOWN INDICATION
     Dosage: 150 MG (QD), ORAL
     Route: 048
     Dates: start: 20051005

REACTIONS (12)
  - ABDOMINAL DISTENSION [None]
  - ANOREXIA [None]
  - ANTI-HBC IGG ANTIBODY POSITIVE [None]
  - ATELECTASIS [None]
  - BLOOD PH DECREASED [None]
  - COAGULOPATHY [None]
  - HEPATIC FAILURE [None]
  - HEPATORENAL SYNDROME [None]
  - METASTATIC NEOPLASM [None]
  - RENAL FAILURE [None]
  - RESPIRATORY FAILURE [None]
  - URINARY TRACT INFECTION [None]
